FAERS Safety Report 9335312 (Version 1)
Quarter: 2013Q2

REPORT INFORMATION
  Report Type: Spontaneous
  Country: CA (occurrence: CA)
  Receive Date: 20130606
  Receipt Date: 20130606
  Transmission Date: 20140414
  Serious: Yes (Other)
  Sender: FDA-Public Use
  Company Number: CA-ROCHE-1231849

PATIENT
  Sex: Female
  Weight: 94.3 kg

DRUGS (5)
  1. XELODA [Suspect]
     Indication: BREAST CANCER METASTATIC
     Route: 048
     Dates: start: 2001
  2. HERCEPTIN [Suspect]
     Indication: BREAST CANCER METASTATIC
     Route: 042
     Dates: start: 2001
  3. EURO D [Concomitant]
     Route: 065
  4. ALDACTONE (CANADA) [Concomitant]
     Route: 065
  5. IMODIUM [Concomitant]
     Route: 065

REACTIONS (3)
  - Neoplasm [Not Recovered/Not Resolved]
  - Disease progression [Not Recovered/Not Resolved]
  - Sarcoma [Unknown]
